FAERS Safety Report 18123639 (Version 1)
Quarter: 2020Q3

REPORT INFORMATION
  Report Type: Report from Study
  Country: SE (occurrence: SE)
  Receive Date: 20200807
  Receipt Date: 20200807
  Transmission Date: 20201103
  Serious: Yes (Death)
  Sender: FDA-Public Use
  Company Number: SE-PFIZER INC-2020298242

PATIENT
  Sex: Male

DRUGS (2)
  1. MEDROXYPROGESTERONE ACETATE. [Suspect]
     Active Substance: MEDROXYPROGESTERONE ACETATE
     Indication: PROSTATE CANCER
     Dosage: 500 MG, 2X/DAY
     Route: 048
  2. EPIRUBICIN HCL [Suspect]
     Active Substance: EPIRUBICIN HYDROCHLORIDE
     Indication: PROSTATE CANCER
     Dosage: 20 MG/M2, WEEKLY (TOTAL DOSE OF 1,000 MG/M^2, CUMULATIVE DOSE 210?1000 MG/M^2)
     Route: 042

REACTIONS (1)
  - Cardiac failure [Fatal]
